FAERS Safety Report 11453495 (Version 1)
Quarter: 2015Q3

REPORT INFORMATION
  Report Type: Spontaneous
  Country: US (occurrence: US)
  Receive Date: 20150831
  Receipt Date: 20150831
  Transmission Date: 20151125
  Serious: Yes (Other)
  Sender: FDA-Public Use
  Company Number: US-ELI_LILLY_AND_COMPANY-US200907004913

PATIENT
  Age: 47 Year
  Sex: Male
  Weight: 90.7 kg

DRUGS (4)
  1. CYMBALTA [Suspect]
     Active Substance: DULOXETINE HYDROCHLORIDE
     Indication: LUMBOSACRAL RADICULOPATHY
     Dosage: 60 MG, UNK
     Dates: start: 2009, end: 2009
  2. NICOTINE. [Concomitant]
     Active Substance: NICOTINE
  3. MOTRIN [Concomitant]
     Active Substance: IBUPROFEN
     Indication: BACK PAIN
     Dosage: 800 MG, UNK
  4. ETHANOL [Concomitant]
     Active Substance: ALCOHOL

REACTIONS (2)
  - Suicidal behaviour [Unknown]
  - Suicidal ideation [Unknown]

NARRATIVE: CASE EVENT DATE: 20090705
